FAERS Safety Report 9159811 (Version 1)
Quarter: 2013Q1

REPORT INFORMATION
  Report Type: Spontaneous
  Country: US (occurrence: US)
  Receive Date: 20130313
  Receipt Date: 20130313
  Transmission Date: 20140127
  Serious: Yes (Hospitalization, Other)
  Sender: FDA-Public Use
  Company Number: US-PAR PHARMACEUTICAL, INC-2013SCPR005803

PATIENT
  Sex: 0

DRUGS (9)
  1. DILTIAZEM HCL [Suspect]
     Indication: CORONARY ARTERY DISEASE
     Dosage: 1 DF, QD
     Route: 048
     Dates: start: 20130109
  2. VITAMIN D3 [Concomitant]
     Indication: PRODUCT USED FOR UNKNOWN INDICATION
     Dosage: 3000 UNITS, EVERY 2 WEEKS
     Route: 048
  3. CITALOPRAM HYDROBROMIDE [Concomitant]
     Indication: PRODUCT USED FOR UNKNOWN INDICATION
     Dosage: 1 DF, DAILY
     Route: 048
  4. ANTIOX #8/OM3/DHA/EPA/LUT/ZEAX (PRESERVATION AREDS 2 SOFTGEL) [Concomitant]
     Indication: PRODUCT USED FOR UNKNOWN INDICATION
     Dosage: 2 CAPSULES EACH
     Route: 048
  5. LISINOPRIL [Concomitant]
     Indication: PRODUCT USED FOR UNKNOWN INDICATION
     Dosage: 1 DF, DAILY
     Route: 048
  6. LEVOXYL [Concomitant]
     Indication: PRODUCT USED FOR UNKNOWN INDICATION
     Dosage: 1 DF, DAILY
     Route: 048
  7. SIMVASTATIN [Concomitant]
     Indication: PRODUCT USED FOR UNKNOWN INDICATION
     Dosage: 40 MG, HS
     Route: 048
  8. LANTUS [Concomitant]
     Indication: PRODUCT USED FOR UNKNOWN INDICATION
     Dosage: 30 UNITS, BEDTIME
     Route: 058
  9. HUMALOG [Concomitant]
     Indication: PRODUCT USED FOR UNKNOWN INDICATION
     Dosage: 20 UNITS, BEFORE MEALS
     Route: 058

REACTIONS (16)
  - Activities of daily living impaired [Recovering/Resolving]
  - Urinary tract infection [Unknown]
  - Neuralgia [Recovering/Resolving]
  - Delirium [Unknown]
  - White blood cell count increased [Unknown]
  - Hyperkalaemia [Recovered/Resolved]
  - Local swelling [Recovering/Resolving]
  - Local swelling [Recovering/Resolving]
  - Pyrexia [Unknown]
  - Decreased appetite [Unknown]
  - Discomfort [Unknown]
  - Pain [Unknown]
  - Drug eruption [Recovering/Resolving]
  - Hyperglycaemia [Recovered/Resolved]
  - Swelling face [Recovered/Resolved]
  - Insomnia [Unknown]
